FAERS Safety Report 9464310 (Version 1)
Quarter: 2013Q3

REPORT INFORMATION
  Report Type: Spontaneous
  Country: US (occurrence: US)
  Receive Date: 20130819
  Receipt Date: 20130819
  Transmission Date: 20140515
  Serious: Yes (Hospitalization)
  Sender: FDA-Public Use
  Company Number: US-SP-2013-08621

PATIENT
  Age: 11 Year
  Sex: Male

DRUGS (1)
  1. DIPHTHERIA ANTITOXIN [Suspect]
     Indication: IMMUNISATION
     Route: 065

REACTIONS (1)
  - Coma [Recovered/Resolved]
